FAERS Safety Report 18906659 (Version 2)
Quarter: 2021Q1

REPORT INFORMATION
  Report Type: Report from Study
  Country: CA (occurrence: CA)
  Receive Date: 20210217
  Receipt Date: 20210223
  Transmission Date: 20210420
  Serious: Yes (Other)
  Sender: FDA-Public Use
  Company Number: CA-ASTRAZENECA-2021A039590

PATIENT
  Sex: Male

DRUGS (2)
  1. CALQUENCE [Suspect]
     Active Substance: ACALABRUTINIB
     Indication: CHRONIC LYMPHOCYTIC LEUKAEMIA
     Route: 048
     Dates: start: 20210128
  2. HYDROMORPHONE [Suspect]
     Active Substance: HYDROMORPHONE
     Indication: PAIN
     Route: 065

REACTIONS (10)
  - Contusion [Unknown]
  - Hallucination [Unknown]
  - Amnesia [Unknown]
  - Asthenia [Unknown]
  - Increased tendency to bruise [Recovering/Resolving]
  - Decreased appetite [Unknown]
  - Tremor [Unknown]
  - Coordination abnormal [Unknown]
  - Hypoacusis [Unknown]
  - Abnormal dreams [Recovering/Resolving]
